FAERS Safety Report 15796761 (Version 5)
Quarter: 2019Q1

REPORT INFORMATION
  Report Type: Report from Study
  Country: US (occurrence: US)
  Receive Date: 20190108
  Receipt Date: 20190228
  Transmission Date: 20190417
  Serious: Yes (Other)
  Sender: FDA-Public Use
  Company Number: US-GILEAD-2019-0383487

PATIENT
  Age: 30 Year
  Sex: Female

DRUGS (5)
  1. TYVASO [Concomitant]
     Active Substance: TREPROSTINIL
     Dosage: UNK
  2. ADCIRCA [Concomitant]
     Active Substance: TADALAFIL
  3. ADEMPAS [Concomitant]
     Active Substance: RIOCIGUAT
  4. AMBRISENTAN [Suspect]
     Active Substance: AMBRISENTAN
     Indication: PRODUCT USED FOR UNKNOWN INDICATION
     Dosage: 10 MG, QD
     Route: 065
     Dates: start: 20180207
  5. TYVASO [Concomitant]
     Active Substance: TREPROSTINIL
     Dosage: UNK, QID

REACTIONS (6)
  - Loss of consciousness [Unknown]
  - Constipation [Not Recovered/Not Resolved]
  - Bowel movement irregularity [Unknown]
  - Epigastric discomfort [Not Recovered/Not Resolved]
  - Syncope [Unknown]
  - Hypotension [Not Recovered/Not Resolved]

NARRATIVE: CASE EVENT DATE: 20181229
